FAERS Safety Report 8799762 (Version 1)
Quarter: 2012Q4

REPORT INFORMATION
  Report Type: Spontaneous
  Country: US (occurrence: None)
  Receive Date: 20120917
  Receipt Date: 20120917
  Transmission Date: 20130627
  Serious: Yes (Hospitalization)
  Sender: FDA-Public Use
  Company Number: UTC-022859

PATIENT
  Age: 66 Year
  Sex: Female
  Weight: 60 kg

DRUGS (1)
  1. TYVASO (6 MICROGRAM, AEROSOL FOR INHALATION) (TREPROSTINIL SODIUM) [Suspect]
     Indication: SYSTEMIC SCLEROSIS
     Dosage: 216 mcg (54 mcg, 4 in 1 D), Inhalation
     Route: 055
     Dates: start: 20120501

REACTIONS (1)
  - Haematemesis [None]
